FAERS Safety Report 18140323 (Version 5)
Quarter: 2021Q1

REPORT INFORMATION
  Report Type: Report from Study
  Country: US (occurrence: US)
  Receive Date: 20200812
  Receipt Date: 20210309
  Transmission Date: 20210419
  Serious: Yes (Hospitalization)
  Sender: FDA-Public Use
  Company Number: US-BAYER-2020-159351

PATIENT
  Age: 81 Year
  Sex: Male
  Weight: 73.47 kg

DRUGS (10)
  1. STIVARGA [Suspect]
     Active Substance: REGORAFENIB
     Indication: HEPATOCELLULAR CARCINOMA
     Dosage: DAILY DOSE 120 MG
     Dates: start: 20200203, end: 20200417
  2. DELTASONE [PREDNISOLONE] [Concomitant]
     Active Substance: PREDNISOLONE
     Indication: SEPTIC SHOCK
     Dosage: 40 MG, ONCE
     Dates: start: 20200514, end: 20200514
  3. IMODIUM [Concomitant]
     Active Substance: LOPERAMIDE HYDROCHLORIDE
     Indication: DIARRHOEA
     Dosage: 2 MG, QID
     Dates: start: 20191206
  4. ALBUTEROL [SALBUTAMOL] [Concomitant]
     Active Substance: ALBUTEROL
     Indication: ASTHMA
     Dosage: 2 PUFF EVERY FOUR HOURS
     Dates: start: 20190215
  5. STIVARGA [Suspect]
     Active Substance: REGORAFENIB
     Indication: HEPATOCELLULAR CARCINOMA
     Dosage: UNK
     Dates: end: 20200501
  6. SINGULAIR [Concomitant]
     Active Substance: MONTELUKAST SODIUM
     Indication: ASTHMA
     Dosage: 5 MG EVERY 24 HOURS
     Dates: start: 20191206
  7. LASIX [Concomitant]
     Active Substance: FUROSEMIDE
     Indication: BILIARY DILATATION
     Dosage: DAILY DOSE 20 MG
     Dates: start: 20191227, end: 20200428
  8. QUESTRAN [Concomitant]
     Active Substance: CHOLESTYRAMINE
     Indication: SEPTIC SHOCK
     Dosage: 4 G, BID
     Dates: start: 20200514, end: 20200515
  9. PRILOSEC [Concomitant]
     Active Substance: OMEPRAZOLE MAGNESIUM
     Indication: DYSPEPSIA
     Dosage: 20 MG, UNK
     Dates: start: 20191206
  10. TEMOVATE [Concomitant]
     Active Substance: CLOBETASOL PROPIONATE
     Indication: ECZEMA
     Dosage: 0.05 %, PRN
     Dates: start: 20190213, end: 20200508

REACTIONS (2)
  - Septic shock [Recovered/Resolved]
  - Staphylococcal bacteraemia [Recovered/Resolved]

NARRATIVE: CASE EVENT DATE: 20200508
